FAERS Safety Report 18253013 (Version 1)
Quarter: 2020Q3

REPORT INFORMATION
  Report Type: Spontaneous
  Country: ES (occurrence: ES)
  Receive Date: 20200910
  Receipt Date: 20200910
  Transmission Date: 20201103
  Serious: Yes (Death)
  Sender: FDA-Public Use
  Company Number: ES-009507513-2009ESP003001

PATIENT
  Age: 69 Year
  Sex: Female
  Weight: 52 kg

DRUGS (10)
  1. PRIMPERAN [Concomitant]
     Active Substance: METOCLOPRAMIDE HYDROCHLORIDE
     Dosage: 10 MILLIGRAM, Q8H (60 TABLETS)
     Route: 048
     Dates: start: 20200528, end: 20200815
  2. CISPLATIN. [Concomitant]
     Active Substance: CISPLATIN
     Indication: LUNG ADENOCARCINOMA STAGE IV
     Dosage: 2ND CYCLE
     Route: 042
     Dates: start: 20200602, end: 20200623
  3. KEYTRUDA [Suspect]
     Active Substance: PEMBROLIZUMAB
     Indication: LUNG ADENOCARCINOMA STAGE IV
     Dosage: 2ND CYCLE
     Route: 042
     Dates: start: 20200602, end: 20200623
  4. OPTOVITE B12 [Concomitant]
     Active Substance: CYANOCOBALAMIN
     Dosage: 1 MILLIGRAM, Q2M (5 VIALS OF 2 ML)
     Route: 030
     Dates: start: 20200528, end: 20200815
  5. ZOLICO [Concomitant]
     Dosage: 400 MICROGRAM, QD (28 TABLETS)
     Route: 048
     Dates: start: 20200528, end: 20200815
  6. VENTOLIN [Concomitant]
     Active Substance: ALBUTEROL SULFATE
     Dosage: 100 MICROGRAM, Q12H (INHALATION SUSPENSION FOR INHALATION IN PRESSURIZED BOTTLE, 1 INHALER 200 DOSES
     Route: 055
     Dates: start: 20180905, end: 20200815
  7. FLIXOTIDE [Concomitant]
     Active Substance: FLUTICASONE PROPIONATE
     Dosage: 500 MICROGRAM, Q12H (INHALATION SUSPENSION FOR INHALATION IN PRESSURIZED BOTTLE, 1 INHALER OF 120 DO
     Route: 055
     Dates: start: 20180905, end: 20200815
  8. CRESTOR [Concomitant]
     Active Substance: ROSUVASTATIN CALCIUM
     Dosage: 5 MILLIGRAM, QD (28 TABLETS)
     Route: 048
     Dates: start: 20180115, end: 20200815
  9. ULTIBRO BREEZEHALER [Concomitant]
     Active Substance: GLYCOPYRRONIUM\INDACATEROL
     Dosage: 1 DOSAGE FORM, QD (30 CAPSULES PLUS 1 INHALER)
     Route: 055
     Dates: start: 20150212, end: 20200815
  10. ALIMTA [Concomitant]
     Active Substance: PEMETREXED DISODIUM
     Dosage: 2ND CYCLE, 1 VIAL
     Route: 042
     Dates: start: 20200602, end: 20200623

REACTIONS (2)
  - Myocarditis [Fatal]
  - Myasthenia gravis crisis [Fatal]

NARRATIVE: CASE EVENT DATE: 20200803
